FAERS Safety Report 11357232 (Version 1)
Quarter: 2015Q3

REPORT INFORMATION
  Report Type: Spontaneous
  Country: US (occurrence: US)
  Receive Date: 20150803
  Receipt Date: 20150803
  Transmission Date: 20151125
  Serious: No
  Sender: FDA-Public Use
  Company Number: US-ELI_LILLY_AND_COMPANY-US201208003982

PATIENT
  Age: 53 Year
  Sex: Female

DRUGS (1)
  1. STRATTERA [Suspect]
     Active Substance: ATOMOXETINE HYDROCHLORIDE
     Indication: COELIAC DISEASE
     Dosage: 40 MG, QD
     Dates: start: 201111, end: 201201

REACTIONS (3)
  - Repetitive speech [Unknown]
  - Confusional state [Unknown]
  - Off label use [Unknown]
